FAERS Safety Report 6875981-7 (Version None)
Quarter: 2010Q3

REPORT INFORMATION
  Report Type: 
  Country: None (occurrence: None)
  Receive Date: 20100727
  Receipt Date: 20070702
  Transmission Date: 20110219
  Serious: Yes (Hospitalization, Other)
  Sender: FDA-Public Use
  Company Number: US-PFIZER INC-2006124691

PATIENT
  Sex: Female
  Weight: 95.3 kg

DRUGS (4)
  1. CELEBREX [Suspect]
     Indication: ARTHRITIS
     Route: 048
     Dates: start: 20030525
  2. VIOXX [Suspect]
     Indication: ARTHRITIS
     Route: 048
     Dates: start: 20030101
  3. PLENDIL [Concomitant]
     Dates: start: 20030523
  4. VICODIN [Concomitant]
     Dates: start: 20020301

REACTIONS (1)
  - MYOCARDIAL INFARCTION [None]
